FAERS Safety Report 18325952 (Version 1)
Quarter: 2020Q3

REPORT INFORMATION
  Report Type: Spontaneous
  Country: US (occurrence: US)
  Receive Date: 20200929
  Receipt Date: 20200929
  Transmission Date: 20201103
  Serious: No
  Sender: FDA-Public Use
  Company Number: US-LUPIN PHARMACEUTICALS INC.-2020-00419

PATIENT
  Age: 26 Year
  Sex: Female
  Weight: 46.71 kg

DRUGS (2)
  1. AZITHROMYCIN TABLETS USP, 250 MG [Suspect]
     Active Substance: AZITHROMYCIN ANHYDROUS
     Indication: SINUSITIS BACTERIAL
     Dosage: 500 MILLIGRAM, QD (DAY ONE)
     Route: 048
     Dates: start: 20200113, end: 20200113
  2. AZITHROMYCIN TABLETS USP, 250 MG [Suspect]
     Active Substance: AZITHROMYCIN ANHYDROUS
     Dosage: 250 MILLIGRAM, QD
     Route: 048
     Dates: start: 20200114, end: 20200117

REACTIONS (2)
  - Diplopia [Not Recovered/Not Resolved]
  - Off label use [Unknown]

NARRATIVE: CASE EVENT DATE: 20200113
